FAERS Safety Report 7797900-1 (Version None)
Quarter: 2011Q4

REPORT INFORMATION
  Report Type: 
  Country: None (occurrence: None)
  Receive Date: 20111005
  Receipt Date: 20110928
  Transmission Date: 20120403
  Serious: Yes (Hospitalization)
  Sender: FDA-Public Use
  Company Number: US-ABBOTT-11P-163-0859547-00

PATIENT
  Sex: Female
  Weight: 61.744 kg

DRUGS (10)
  1. ASPIRIN [Concomitant]
     Indication: PROPHYLAXIS
  2. METOPROLOL SUCCINATE EXTENDED RELEASE [Concomitant]
     Indication: CARDIOVASCULAR DISORDER
  3. LOVASTATIN [Concomitant]
     Indication: BLOOD CHOLESTEROL INCREASED
  4. OMEPRAZOLE [Concomitant]
     Indication: GASTROOESOPHAGEAL REFLUX DISEASE
  5. ADVAIR DISKUS 100/50 [Concomitant]
     Indication: ASTHMA
  6. ADVAIR DISKUS 100/50 [Concomitant]
     Indication: TOBACCO USER
  7. SPIRIVA [Concomitant]
     Indication: ASTHMA
  8. FUROSEMIDE [Concomitant]
     Indication: CARDIAC FAILURE CONGESTIVE
  9. HUMIRA [Suspect]
     Indication: CROHN'S DISEASE
     Dates: start: 20100101
  10. FUROSEMIDE [Concomitant]
     Indication: CARDIOMYOPATHY

REACTIONS (9)
  - MUSCLE INJURY [None]
  - DIARRHOEA [None]
  - VOMITING [None]
  - PYREXIA [None]
  - ROTATOR CUFF SYNDROME [None]
  - MUSCULOSKELETAL PAIN [None]
  - NAUSEA [None]
  - GASTROINTESTINAL INFECTION [None]
  - ABDOMINAL PAIN [None]
